FAERS Safety Report 8270895-2 (Version None)
Quarter: 2012Q2

REPORT INFORMATION
  Report Type: 
  Country: None (occurrence: None)
  Receive Date: 20120410
  Receipt Date: 20120410
  Transmission Date: 20120825
  Serious: Yes (Hospitalization)
  Sender: FDA-Public Use
  Company Number: None

PATIENT
  Sex: Female
  Weight: 107 kg

DRUGS (1)
  1. PHENYTOIN SODIUM [Suspect]
     Dosage: 200.0 MG
     Route: 048

REACTIONS (7)
  - RASH MACULO-PAPULAR [None]
  - DRUG ERUPTION [None]
  - SYSTEMIC LUPUS ERYTHEMATOSUS [None]
  - PYREXIA [None]
  - DRUG RASH WITH EOSINOPHILIA AND SYSTEMIC SYMPTOMS [None]
  - CONVULSION [None]
  - STAPHYLOCOCCUS TEST POSITIVE [None]
